FAERS Safety Report 26181453 (Version 1)
Quarter: 2025Q4

REPORT INFORMATION
  Report Type: Spontaneous
  Country: EU (occurrence: EU)
  Receive Date: 20251221
  Receipt Date: 20251221
  Transmission Date: 20260117
  Serious: Yes (Death, Hospitalization, Other)
  Sender: ELI LILLY AND COMPANY
  Company Number: EU-ELI_LILLY_AND_COMPANY-FR202512024287

PATIENT
  Age: 58 Year
  Sex: Female

DRUGS (15)
  1. GEMZAR [Suspect]
     Active Substance: GEMCITABINE HYDROCHLORIDE
     Indication: Adenocarcinoma pancreas
     Dosage: UNK UNK, UNKNOWN
     Route: 042
     Dates: start: 202407
  2. GEMZAR [Suspect]
     Active Substance: GEMCITABINE HYDROCHLORIDE
     Dosage: 1720 MG, UNKNOWN
     Route: 042
     Dates: start: 20250905
  3. GEMZAR [Suspect]
     Active Substance: GEMCITABINE HYDROCHLORIDE
     Dosage: 1720 MG, UNKNOWN
     Route: 042
     Dates: start: 20250912
  4. GEMZAR [Suspect]
     Active Substance: GEMCITABINE HYDROCHLORIDE
     Dosage: 1360 MG, UNKNOWN
     Route: 042
     Dates: start: 20251003, end: 20251017
  5. ABRAXANE [Suspect]
     Active Substance: PACLITAXEL
     Indication: Adenocarcinoma pancreas
     Dosage: UNK UNK, UNKNOWN
     Route: 065
     Dates: start: 202407
  6. ABRAXANE [Suspect]
     Active Substance: PACLITAXEL
     Dosage: 215 MG, UNKNOWN
     Route: 065
     Dates: start: 20250905
  7. ABRAXANE [Suspect]
     Active Substance: PACLITAXEL
     Dosage: 215 MG, UNKNOWN
     Route: 065
     Dates: start: 20250912
  8. ABRAXANE [Suspect]
     Active Substance: PACLITAXEL
     Dosage: 215 MG, UNKNOWN
     Route: 065
     Dates: start: 20251003
  9. ZOPICLONE [Concomitant]
     Active Substance: ZOPICLONE
     Indication: Product used for unknown indication
  10. SERTRALINE [Concomitant]
     Active Substance: SERTRALINE HYDROCHLORIDE
     Indication: Product used for unknown indication
  11. BROMAZEPAM [Concomitant]
     Active Substance: BROMAZEPAM
     Indication: Product used for unknown indication
  12. ESOMEPRAZOLE [Concomitant]
     Active Substance: ESOMEPRAZOLE
     Indication: Product used for unknown indication
  13. POTASSIUM CITRATE [Concomitant]
     Active Substance: POTASSIUM CITRATE
     Indication: Product used for unknown indication
  14. SORBITOL [Concomitant]
     Active Substance: SORBITOL
     Indication: Product used for unknown indication
  15. SPAGULAX [Concomitant]
     Active Substance: HERBALS\PLANTAGO OVATA SEED
     Indication: Product used for unknown indication

REACTIONS (9)
  - Malignant neoplasm progression [Fatal]
  - Thrombotic microangiopathy [Not Recovered/Not Resolved]
  - Gastroenteritis eosinophilic [Not Recovered/Not Resolved]
  - Acute kidney injury [Not Recovered/Not Resolved]
  - Headache [Unknown]
  - Hypertension [Unknown]
  - Diplopia [Unknown]
  - Anaemia [Unknown]
  - Thrombocytopenia [Unknown]

NARRATIVE: CASE EVENT DATE: 20250901
